FAERS Safety Report 13676651 (Version 4)
Quarter: 2018Q2

REPORT INFORMATION
  Report Type: Spontaneous
  Country: US (occurrence: US)
  Receive Date: 20170622
  Receipt Date: 20180522
  Transmission Date: 20180711
  Serious: No
  Sender: FDA-Public Use
  Company Number: US-PFIZER INC-2017269431

PATIENT
  Age: 53 Year
  Sex: Female

DRUGS (2)
  1. IBRANCE [Suspect]
     Active Substance: PALBOCICLIB
     Indication: BREAST CANCER FEMALE
     Dosage: 125 MG, CYCLIC (21 DAYS ON/ ONCE DAILY FOR 3 WEEKS)
     Route: 048
     Dates: start: 20170510
  2. IBRANCE [Suspect]
     Active Substance: PALBOCICLIB
     Indication: BONE CANCER

REACTIONS (5)
  - Arthralgia [Not Recovered/Not Resolved]
  - Asthenia [Unknown]
  - Depression [Unknown]
  - Stomatitis [Unknown]
  - Nausea [Not Recovered/Not Resolved]
